FAERS Safety Report 26052443 (Version 1)
Quarter: 2025Q4

REPORT INFORMATION
  Report Type: Spontaneous
  Country: JP (occurrence: JP)
  Receive Date: 20251117
  Receipt Date: 20251117
  Transmission Date: 20260118
  Serious: Yes (Other)
  Sender: BRISTOL-MYERS SQUIBB COMPANY
  Company Number: JP-BRISTOL-MYERS SQUIBB COMPANY-2025-152979

PATIENT

DRUGS (2)
  1. AUGTYRO [Suspect]
     Active Substance: REPOTRECTINIB
     Indication: Product used for unknown indication
     Route: 048
  2. AUGTYRO [Suspect]
     Active Substance: REPOTRECTINIB
     Dosage: DOSE: HALF A DOSE
     Route: 048

REACTIONS (7)
  - Arthropathy [Not Recovered/Not Resolved]
  - Arthralgia [Not Recovered/Not Resolved]
  - Myalgia [Not Recovered/Not Resolved]
  - Joint effusion [Unknown]
  - Bone loss [Not Recovered/Not Resolved]
  - Chondropathy [Not Recovered/Not Resolved]
  - Hand deformity [Not Recovered/Not Resolved]
